FAERS Safety Report 6604979-9 (Version None)
Quarter: 2010Q1

REPORT INFORMATION
  Report Type: 
  Country: None (occurrence: None)
  Receive Date: 20100226
  Receipt Date: 20100212
  Transmission Date: 20100710
  Serious: Yes (Other)
  Sender: FDA-Public Use
  Company Number: GB-BAYER-201013291GPV

PATIENT
  Weight: 1.55 kg

DRUGS (1)
  1. NIFEDIPINE [Suspect]
     Indication: PREGNANCY INDUCED HYPERTENSION
     Dosage: MOTHER TOOK 10 MG CAPSULE SUBLINGUAL
     Route: 064

REACTIONS (3)
  - FOETAL DISTRESS SYNDROME [None]
  - PREMATURE BABY [None]
  - TACHYCARDIA FOETAL [None]
